FAERS Safety Report 5846500-9 (Version None)
Quarter: 2008Q3

REPORT INFORMATION
  Report Type: 
  Country: None (occurrence: None)
  Receive Date: 20080815
  Receipt Date: 20080806
  Transmission Date: 20090109
  Serious: Yes (Other)
  Sender: FDA-Public Use
  Company Number: FR-BRISTOL-MYERS SQUIBB COMPANY-13841986

PATIENT
  Age: 59 Year
  Sex: Male

DRUGS (11)
  1. CETUXIMAB [Suspect]
     Indication: COLON CANCER
     Route: 042
     Dates: start: 20061121
  2. OXALIPLATIN [Suspect]
     Indication: COLON CANCER
     Route: 042
     Dates: start: 20061121
  3. FLUOROURACIL [Suspect]
     Indication: COLON CANCER
     Route: 042
     Dates: start: 20061121
  4. FOLINIC ACID [Suspect]
     Indication: COLON CANCER
     Route: 042
     Dates: start: 20061121
  5. PANTOPRAZOLE [Concomitant]
     Route: 048
  6. ONDANSETRON [Concomitant]
     Route: 048
  7. ALBUTEROL [Concomitant]
  8. TETRACYCLINE [Concomitant]
  9. ANTIHISTAMINE DRUGS [Concomitant]
     Route: 042
  10. METHYLPREDNISOLONE 16MG TAB [Concomitant]
     Route: 042
  11. GRANISETRON HCL [Concomitant]
     Route: 042

REACTIONS (3)
  - FOCAL NODULAR HYPERPLASIA [None]
  - PORTAL VEIN THROMBOSIS [None]
  - SPLENOMEGALY [None]
